FAERS Safety Report 9548153 (Version 6)
Quarter: 2014Q2

REPORT INFORMATION
  Report Type: Report from Study
  Country: JP (occurrence: JP)
  Receive Date: 20130924
  Receipt Date: 20140620
  Transmission Date: 20141212
  Serious: Yes (Life-Threatening, Hospitalization)
  Sender: FDA-Public Use
  Company Number: JP-PFIZER INC-2013270289

PATIENT
  Age: 66 Year
  Sex: Male
  Weight: 51 kg

DRUGS (20)
  1. XALKORI [Suspect]
     Indication: NON-SMALL CELL LUNG CANCER
     Dosage: 250 MG, 2X/DAY
     Route: 048
     Dates: start: 20130724, end: 20130911
  2. LYRICA [Concomitant]
     Indication: THERAPEUTIC PROCEDURE
     Dosage: 75 MG, 1X/DAY
     Route: 048
     Dates: end: 20130915
  3. LYRICA [Concomitant]
     Dosage: 75 MG, 2X/DAY
     Route: 048
     Dates: start: 20130916
  4. PARIET [Concomitant]
     Dosage: 10 MG, 1X/DAY
     Route: 048
  5. CELECOX [Concomitant]
     Dosage: 100 MG, 2X/DAY
     Route: 048
  6. MAGMITT [Concomitant]
     Dosage: FROM 330 TO 660 MG DIVIDED THREE TIMES DAILY
     Route: 048
  7. MS CONTIN [Concomitant]
     Dosage: 60 MG, 2X/DAY
     Route: 048
     Dates: end: 20130913
  8. SYMBICORT [Concomitant]
     Dosage: 1 DF, 2X/DAY
     Route: 055
  9. FOSMICIN S [Concomitant]
     Dosage: UNK
     Route: 001
  10. RINDERON [Concomitant]
     Dosage: UNK
     Route: 001
  11. ALOSENN [Concomitant]
     Dosage: 1 G, 1X/DAY
     Route: 048
  12. LASIX [Concomitant]
     Indication: THERAPEUTIC PROCEDURE
     Dosage: 20 MG, 1X/DAY
     Route: 048
     Dates: start: 20130905
  13. MERISLON [Concomitant]
     Dosage: 12 MG, 3X/DAY
     Route: 048
  14. CARNACULIN [Concomitant]
     Dosage: 50 IU, 2X/DAY
     Route: 048
  15. KIPRES [Concomitant]
     Dosage: 10 MG, 1X/DAY
     Route: 048
  16. ALEVIATIN [Concomitant]
     Dosage: AT 25 MG TWICE DAILY AND 100 MG TWICE DAILY
     Route: 048
  17. HARNAL D [Concomitant]
     Dosage: 0.3 MG, 1X/DAY
     Route: 048
  18. NIFLAN [Concomitant]
     Dosage: 2 OR 3 TIMES DAILY
     Route: 047
  19. FLUNASE [Concomitant]
     Dosage: UNK
     Route: 045
  20. TRAMAZOLINE [Concomitant]
     Dosage: TWICE DAILY
     Route: 045

REACTIONS (1)
  - Interstitial lung disease [Recovering/Resolving]
